FAERS Safety Report 8834481 (Version 2)
Quarter: 2012Q4

REPORT INFORMATION
  Report Type: 
  Country: US (occurrence: US)
  Receive Date: 20121010
  Receipt Date: 20121019
  Transmission Date: 20130627
  Serious: Yes (Death, Hospitalization)
  Sender: FDA-Public Use
  Company Number: US-B.I. PHARMACEUTICALS,INC./RIDGEFIELD-2012-BP-24940BP

PATIENT
  Age: 74 Year
  Sex: Male
  Weight: 88.9 kg

DRUGS (14)
  1. PRADAXA [Suspect]
     Indication: ATRIAL FIBRILLATION
     Dosage: 300 mg
     Dates: start: 20110117, end: 2012
  2. METFORMIN HYDROCHLORIDE [Concomitant]
     Indication: TYPE 2 DIABETES MELLITUS
     Dates: start: 20110406, end: 20120315
  3. PANTOPRAZOLE [Concomitant]
     Route: 048
     Dates: end: 20120315
  4. METOPROLOL SUCCINATE ER [Concomitant]
     Indication: ATRIAL FIBRILLATION
     Route: 048
     Dates: start: 20100519
  5. DIGOXIN [Concomitant]
     Indication: ATRIAL FIBRILLATION
     Dates: start: 20100519
  6. IRON (FERROUS SULFATE) [Concomitant]
     Indication: IRON DEFICIENCY ANAEMIA
     Route: 048
  7. TERAZOSIN HYDROCHLORIDE [Concomitant]
     Route: 048
  8. SIMCOR [Concomitant]
     Indication: TYPE V HYPERLIPIDAEMIA
     Route: 048
  9. HYTRIN [Concomitant]
     Route: 048
  10. TRIBENZOR [Concomitant]
     Route: 048
  11. JANUMET [Concomitant]
     Route: 048
     Dates: start: 20120315
  12. DIGOXIN [Concomitant]
     Route: 048
     Dates: start: 20120315
  13. ACTOS [Concomitant]
     Route: 048
     Dates: end: 20120315
  14. KAPIDEX [Concomitant]
     Dates: end: 20120315

REACTIONS (1)
  - Gastrointestinal haemorrhage [Fatal]
